FAERS Safety Report 9153850 (Version 1)
Quarter: 2013Q1

REPORT INFORMATION
  Report Type: Spontaneous
  Country: US (occurrence: None)
  Receive Date: 20130206
  Receipt Date: 20130206
  Transmission Date: 20140127
  Serious: Yes (Disabling, Other)
  Sender: FDA-Public Use
  Company Number: DAV-AE-MTX-13-11

PATIENT
  Age: 12 Year
  Sex: Female

DRUGS (1)
  1. METHOTREXATE [Suspect]
     Indication: ACUTE LYMPHOCYTIC LEUKAEMIA

REACTIONS (7)
  - Convulsion [None]
  - Leukodystrophy [None]
  - Toxicity to various agents [None]
  - Disturbance in attention [None]
  - Reading disorder [None]
  - Memory impairment [None]
  - Cognitive disorder [None]
